FAERS Safety Report 8941257 (Version 2)
Quarter: 2012Q4

REPORT INFORMATION
  Report Type: 
  Country: US (occurrence: US)
  Receive Date: 20121203
  Receipt Date: 20121204
  Transmission Date: 20130627
  Serious: Yes (Hospitalization, Other)
  Sender: FDA-Public Use
  Company Number: US-ELI_LILLY_AND_COMPANY-US201211006914

PATIENT
  Age: 86 Year
  Sex: Female

DRUGS (1)
  1. FORTEO [Suspect]
     Dosage: UNK, unknown
     Route: 065

REACTIONS (5)
  - Hospitalisation [Recovered/Resolved]
  - Lower limb fracture [Unknown]
  - Accident [Unknown]
  - Pain [Unknown]
  - Wrist fracture [Unknown]
